FAERS Safety Report 9939446 (Version 1)
Quarter: 2014Q1

REPORT INFORMATION
  Report Type: Report from Study
  Country: US (occurrence: US)
  Receive Date: 20140303
  Receipt Date: 20140303
  Transmission Date: 20141002
  Serious: No
  Sender: FDA-Public Use
  Company Number: US-ABBVIE-13P-163-1037958-00

PATIENT
  Age: 46 Year
  Sex: Female

DRUGS (9)
  1. HUMIRA [Suspect]
     Indication: CROHN^S DISEASE
     Dates: start: 2009, end: 201211
  2. ADVAIR [Concomitant]
     Indication: ASTHMA
  3. SINGULAIR [Concomitant]
     Indication: ASTHMA
  4. FLONASE [Concomitant]
     Indication: HYPERSENSITIVITY
  5. PRILOSEC [Concomitant]
     Indication: GASTROOESOPHAGEAL REFLUX DISEASE
  6. VITAMIN D NOS [Concomitant]
     Indication: SUPPLEMENTATION THERAPY
  7. CLARITIN D [Concomitant]
     Indication: HYPERSENSITIVITY
  8. VITAMIN B12 NOS [Concomitant]
     Indication: ILL-DEFINED DISORDER
  9. TYLENOL [Concomitant]
     Indication: PAIN

REACTIONS (2)
  - Wisdom teeth removal [Recovered/Resolved]
  - Localised infection [Recovered/Resolved]
